FAERS Safety Report 9981146 (Version 4)
Quarter: 2014Q1

REPORT INFORMATION
  Report Type: Spontaneous
  Country: JP (occurrence: JP)
  Receive Date: 20140307
  Receipt Date: 20140324
  Transmission Date: 20141002
  Serious: Yes (Death)
  Sender: FDA-Public Use
  Company Number: JP-ASTELLAS-2014US002277

PATIENT
  Age: 76 Year
  Sex: Male

DRUGS (12)
  1. TARCEVA [Suspect]
     Indication: LUNG NEOPLASM MALIGNANT
     Dosage: 150 MG, UID/QD
     Route: 048
     Dates: start: 20140224, end: 20140225
  2. LASIX                              /00032601/ [Concomitant]
     Indication: PRODUCT USED FOR UNKNOWN INDICATION
     Dosage: 40 MG, UID/QD
     Route: 048
  3. ALDACTONE A [Concomitant]
     Indication: PRODUCT USED FOR UNKNOWN INDICATION
     Dosage: 25 MG, UID/QD
     Route: 048
  4. MAGMITT [Concomitant]
     Indication: CONSTIPATION
     Dosage: 250 MG, BID
     Route: 048
  5. GASMOTIN [Concomitant]
     Indication: CONSTIPATION
     Dosage: 5 MG, BID
     Route: 048
  6. SENNOSIDE                          /00571901/ [Concomitant]
     Indication: CONSTIPATION
     Dosage: 12 MG, UID/QD
     Route: 048
  7. REBAMIPIDE [Concomitant]
     Indication: PRODUCT USED FOR UNKNOWN INDICATION
     Dosage: 100 MG, TID
     Route: 048
  8. HIRUDOID                           /00723702/ [Concomitant]
     Indication: PRODUCT USED FOR UNKNOWN INDICATION
     Dosage: 5 G, QID
     Route: 003
  9. LYRICA [Concomitant]
     Indication: PRODUCT USED FOR UNKNOWN INDICATION
     Dosage: 75 MG, UID/QD
     Route: 048
  10. DICLOFENAC SODIUM [Concomitant]
     Indication: BACK PAIN
     Dosage: 350 MG, BID
     Route: 054
  11. DICLOFENAC SODIUM [Concomitant]
     Dosage: 50 MG, PRN
     Route: 054
  12. SOSEGON                            /00052101/ [Concomitant]
     Indication: BACK PAIN
     Dosage: 15 MG, UID/QD
     Route: 030

REACTIONS (1)
  - Ileus [Fatal]
